FAERS Safety Report 15374336 (Version 2)
Quarter: 2020Q3

REPORT INFORMATION
  Report Type: Other
  Country: HU (occurrence: HU)
  Receive Date: 20180912
  Receipt Date: 20181006
  Transmission Date: 20201104
  Serious: Yes (Other)
  Sender: FDA-Public Use
  Company Number: HU-MACLEODS PHARMACEUTICALS US LTD-MAC2018016539

PATIENT

DRUGS (22)
  1. EPHEDRINE. [Suspect]
     Active Substance: EPHEDRINE
     Dosage: 25 UNK, 25 MG/H
     Route: 042
  2. MIDAZOLAM HYDROCHLORIDE. [Suspect]
     Active Substance: MIDAZOLAM HYDROCHLORIDE
     Indication: PRODUCT USED FOR UNKNOWN INDICATION
     Dosage: 7.5 MILLIGRAM
     Route: 048
  3. DIGOXIN. [Suspect]
     Active Substance: DIGOXIN
     Indication: PRODUCT USED FOR UNKNOWN INDICATION
     Dosage: UNK, 1 TRIMESTER
     Route: 065
  4. EPHEDRINE. [Suspect]
     Active Substance: EPHEDRINE
     Indication: PRODUCT USED FOR UNKNOWN INDICATION
     Dosage: 5 MILLIGRAM, 11 TIMES
     Route: 042
  5. HEPARIN SODIUM. [Suspect]
     Active Substance: HEPARIN SODIUM
     Dosage: 10 INTERNATIONAL UNIT
     Route: 065
  6. PIPECURONIUM BROMIDE. [Suspect]
     Active Substance: PIPECURONIUM BROMIDE
     Indication: PRODUCT USED FOR UNKNOWN INDICATION
     Dosage: UNK, 4 MILLIGRAM
     Route: 040
  7. PROPOFOL. [Suspect]
     Active Substance: PROPOFOL
     Indication: PRODUCT USED FOR UNKNOWN INDICATION
     Dosage: UNK, 2?1.5 UG/ML,
     Route: 042
  8. ENOXAPARIN [Suspect]
     Active Substance: ENOXAPARIN
     Indication: PRODUCT USED FOR UNKNOWN INDICATION
     Dosage: UNK
     Route: 065
  9. HEPARIN SODIUM. [Suspect]
     Active Substance: HEPARIN SODIUM
     Indication: PRODUCT USED FOR UNKNOWN INDICATION
     Dosage: 20 INTERNATIONAL UNIT
     Route: 065
  10. HEPARIN SODIUM. [Suspect]
     Active Substance: HEPARIN SODIUM
     Dosage: 10000 UNK
     Route: 065
  11. SEVOFLURANE. [Suspect]
     Active Substance: SEVOFLURANE
     Indication: PRODUCT USED FOR UNKNOWN INDICATION
     Dosage: UNK, 1.5?2.0 %
     Route: 065
  12. AMPICILLIN SODIUM. [Suspect]
     Active Substance: AMPICILLIN SODIUM
     Indication: PRODUCT USED FOR UNKNOWN INDICATION
     Dosage: 1 UNK, 1 {TRIMESTER}, 2G PER 4 HOUR
     Route: 065
  13. SUFENTANIL [Suspect]
     Active Substance: SUFENTANIL
     Indication: PRODUCT USED FOR UNKNOWN INDICATION
     Dosage: 10 MICROGRAM
     Route: 065
  14. PANTOPRAZOLE [Suspect]
     Active Substance: PANTOPRAZOLE
     Indication: PRODUCT USED FOR UNKNOWN INDICATION
     Dosage: 40 MILLIGRAM
     Route: 042
  15. PANTOPRAZOLE [Suspect]
     Active Substance: PANTOPRAZOLE
     Dosage: 40 UNK
     Route: 048
  16. METOPROLOL. [Suspect]
     Active Substance: METOPROLOL
     Indication: SINUS TACHYCARDIA
     Dosage: UNK
     Route: 065
  17. MIDAZOLAM HYDROCHLORIDE. [Suspect]
     Active Substance: MIDAZOLAM HYDROCHLORIDE
     Dosage: 5 UNK
     Route: 065
  18. HEPARIN SODIUM. [Suspect]
     Active Substance: HEPARIN SODIUM
     Dosage: 20000 UNK
     Route: 065
  19. PENAMECILLIN [Suspect]
     Active Substance: PENAMECILLIN
     Indication: ALPHA HAEMOLYTIC STREPTOCOCCAL INFECTION
     Dosage: UNK
     Route: 065
  20. ISOFLURANE. [Suspect]
     Active Substance: ISOFLURANE
     Indication: PRODUCT USED FOR UNKNOWN INDICATION
     Dosage: UNK, 0.5?1.0 %
     Route: 065
  21. PROTAMINE SULFATE. [Suspect]
     Active Substance: PROTAMINE SULFATE
     Indication: PRODUCT USED FOR UNKNOWN INDICATION
     Dosage: 200 MILLIGRAM
     Route: 065
  22. EPHEDRINE. [Suspect]
     Active Substance: EPHEDRINE
     Dosage: 5 UNK, 3 TIMES
     Route: 042

REACTIONS (13)
  - Ejection fraction decreased [Recovered/Resolved]
  - Maternal exposure during pregnancy [Unknown]
  - Fluid overload [Unknown]
  - Alpha haemolytic streptococcal infection [Unknown]
  - Cardiac valve vegetation [Unknown]
  - Hyperthyroidism [Unknown]
  - Cardiac failure [Unknown]
  - Thyroid cyst [Unknown]
  - Hypokinesia [Unknown]
  - Cardiac valve abscess [Unknown]
  - Dyspnoea [Unknown]
  - Anaemia [Unknown]
  - Sinus tachycardia [Unknown]
